FAERS Safety Report 7602120 (Version 2)
Quarter: 2018Q4

REPORT INFORMATION
  Report Type: Spontaneous
  Country: US (occurrence: US)
  Receive Date: 20100922
  Receipt Date: 20181004
  Transmission Date: 20190205
  Serious: No
  Sender: FDA-Public Use
  Company Number: US-PFIZER INC-2010117452

PATIENT
  Age: 25 Year
  Sex: Female
  Weight: 79.82 kg

DRUGS (1)
  1. ZITHROMAX [Suspect]
     Active Substance: AZITHROMYCIN DIHYDRATE
     Indication: CHLAMYDIAL INFECTION
     Dosage: 4 G, 1X/DAY
     Dates: start: 20100806, end: 20100806

REACTIONS (4)
  - Product dispensing error [Unknown]
  - Vomiting [Unknown]
  - Product use in unapproved indication [Unknown]
  - Accidental overdose [Unknown]

NARRATIVE: CASE EVENT DATE: 20100806
